FAERS Safety Report 12435051 (Version 1)
Quarter: 2016Q2

REPORT INFORMATION
  Report Type: Spontaneous
  Country: US (occurrence: US)
  Receive Date: 20160603
  Receipt Date: 20160603
  Transmission Date: 20160815
  Serious: Yes (Hospitalization)
  Sender: FDA-Public Use
  Company Number: US-ROCHE-1291455

PATIENT
  Sex: Male

DRUGS (1)
  1. XELODA [Suspect]
     Active Substance: CAPECITABINE
     Indication: RECTAL CANCER
     Dosage: 1500MG IN MORNING.?2000MG IN AFTERNOON.
     Route: 065
     Dates: start: 20130524

REACTIONS (3)
  - Chest discomfort [Unknown]
  - Loss of consciousness [Unknown]
  - Dyspnoea exertional [Unknown]
